FAERS Safety Report 25081668 (Version 1)
Quarter: 2025Q1

REPORT INFORMATION
  Report Type: Report from Study
  Country: GB (occurrence: GB)
  Receive Date: 20250316
  Receipt Date: 20250316
  Transmission Date: 20250409
  Serious: Yes (Hospitalization, Other)
  Sender: ABBVIE
  Company Number: GB-ABBVIE-6177011

PATIENT
  Age: 59 Year
  Sex: Female

DRUGS (1)
  1. SKYRIZI [Suspect]
     Active Substance: RISANKIZUMAB-RZAA
     Indication: Psoriasis
     Route: 058

REACTIONS (6)
  - Fall [Unknown]
  - Cervical vertebral fracture [Unknown]
  - Lumbar vertebral fracture [Unknown]
  - Rib fracture [Unknown]
  - Pneumothorax [Unknown]
  - Mallet finger [Unknown]

NARRATIVE: CASE EVENT DATE: 20250101
